FAERS Safety Report 7528120-3 (Version None)
Quarter: 2011Q2

REPORT INFORMATION
  Report Type: 
  Country: None (occurrence: None)
  Receive Date: 20110607
  Receipt Date: 20100506
  Transmission Date: 20111010
  Serious: No
  Sender: FDA-Public Use
  Company Number: US-ASTRAZENECA-2010SE20811

PATIENT
  Sex: Female
  Weight: 57.6 kg

DRUGS (3)
  1. CARVEDILOL [Concomitant]
     Indication: HYPERTENSION
  2. AMLODIPINE [Concomitant]
     Indication: HYPERTENSION
  3. OMEPRAZOLE [Suspect]
     Route: 048

REACTIONS (1)
  - DRUG EFFECT DECREASED [None]
